FAERS Safety Report 17431972 (Version 5)
Quarter: 2020Q2

REPORT INFORMATION
  Report Type: Report from Study
  Country: US (occurrence: US)
  Receive Date: 20200218
  Receipt Date: 20200617
  Transmission Date: 20200713
  Serious: Yes (Hospitalization)
  Sender: FDA-Public Use
  Company Number: US-EISAI MEDICAL RESEARCH-EC-2019-067110

PATIENT
  Age: 66 Year
  Sex: Female
  Weight: 108.8 kg

DRUGS (23)
  1. ACETAMINOPHEN. [Concomitant]
     Active Substance: ACETAMINOPHEN
  2. CHOLECALCIFEROL [Concomitant]
     Active Substance: CHOLECALCIFEROL
  3. PERCOCET [Concomitant]
     Active Substance: ACETAMINOPHEN\OXYCODONE HYDROCHLORIDE
  4. POTASSIUM CHLORIDE. [Concomitant]
     Active Substance: POTASSIUM CHLORIDE
  5. LENVIMA [Suspect]
     Active Substance: LENVATINIB
     Route: 048
     Dates: start: 20200317, end: 20200506
  6. AMLODIPINE BESYLATE. [Concomitant]
     Active Substance: AMLODIPINE BESYLATE
  7. LENVIMA [Suspect]
     Active Substance: LENVATINIB
     Route: 048
     Dates: start: 202005, end: 202006
  8. MAGNESIUM [Concomitant]
     Active Substance: MAGNESIUM
  9. MIRALAX [Concomitant]
     Active Substance: POLYETHYLENE GLYCOL 3350
  10. LENVIMA [Suspect]
     Active Substance: LENVATINIB
     Route: 048
     Dates: start: 202001, end: 20200316
  11. LENVIMA [Suspect]
     Active Substance: LENVATINIB
     Dosage: 2 WEEKS ON, 1 WEEK OFF
     Route: 048
     Dates: start: 20200609
  12. CYANOCOBALAMIN. [Concomitant]
     Active Substance: CYANOCOBALAMIN
  13. SENOKOT [Concomitant]
     Active Substance: SENNOSIDES
  14. ONDANSETRON [Concomitant]
     Active Substance: ONDANSETRON
  15. KEYTRUDA [Concomitant]
     Active Substance: PEMBROLIZUMAB
     Indication: ENDOMETRIAL CANCER
  16. ALLOPURINOL. [Concomitant]
     Active Substance: ALLOPURINOL
  17. FUROSEMIDE. [Concomitant]
     Active Substance: FUROSEMIDE
  18. LENVIMA [Suspect]
     Active Substance: LENVATINIB
     Indication: ENDOMETRIAL CANCER
     Route: 048
     Dates: start: 20191127, end: 20191216
  19. GABAPENTIN. [Concomitant]
     Active Substance: GABAPENTIN
  20. LEVOTHYROXINE SODIUM. [Concomitant]
     Active Substance: LEVOTHYROXINE SODIUM
  21. METOPROLOL TARTRATE. [Concomitant]
     Active Substance: METOPROLOL TARTRATE
  22. DELTASONE [Concomitant]
     Active Substance: PREDNISONE
  23. SILVER SULFADIAZINE. [Concomitant]
     Active Substance: SILVER SULFADIAZINE

REACTIONS (19)
  - Hepatic enzyme increased [Recovered/Resolved]
  - Taste disorder [Not Recovered/Not Resolved]
  - Constipation [Recovered/Resolved]
  - Tremor [Unknown]
  - Asthenia [Unknown]
  - Incontinence [Not Recovered/Not Resolved]
  - Decreased appetite [Recovering/Resolving]
  - Haemoglobin increased [Not Recovered/Not Resolved]
  - Hypotension [Recovering/Resolving]
  - Spinal stenosis [Not Recovered/Not Resolved]
  - Abdominal pain [Not Recovered/Not Resolved]
  - Malignant neoplasm progression [Not Recovered/Not Resolved]
  - Acute kidney injury [Recovered/Resolved]
  - Fatigue [Recovering/Resolving]
  - Blood creatine increased [Not Recovered/Not Resolved]
  - Dizziness [Not Recovered/Not Resolved]
  - Dry mouth [Not Recovered/Not Resolved]
  - Weight decreased [Not Recovered/Not Resolved]
  - Hyperkalaemia [Not Recovered/Not Resolved]

NARRATIVE: CASE EVENT DATE: 2019
